FAERS Safety Report 10927957 (Version 2)
Quarter: 2015Q1

REPORT INFORMATION
  Report Type: Spontaneous
  Country: JP (occurrence: JP)
  Receive Date: 20150319
  Receipt Date: 20150330
  Transmission Date: 20150721
  Serious: Yes (Other)
  Sender: FDA-Public Use
  Company Number: JP-ACCORD-029409

PATIENT
  Age: 74 Year
  Sex: Male

DRUGS (6)
  1. ANPLAG [Concomitant]
     Active Substance: SARPOGRELATE
  2. PLETAL [Concomitant]
     Active Substance: CILOSTAZOL
  3. CISPLATIN. [Suspect]
     Active Substance: CISPLATIN
     Indication: OESOPHAGEAL CARCINOMA
  4. CANDESARTAN/CANDESARTAN CILEXETIL [Concomitant]
  5. AMLODIPINE/AMLODIPINE BESILATE/AMLODIPINE MALEATE/AMLODIPINE MESILATE [Concomitant]
  6. FLUOROURACIL. [Suspect]
     Active Substance: FLUOROURACIL
     Indication: OESOPHAGEAL CARCINOMA

REACTIONS (2)
  - Thrombosis [Unknown]
  - Pulmonary embolism [Recovered/Resolved]
